FAERS Safety Report 5024304-7 (Version None)
Quarter: 2006Q2

REPORT INFORMATION
  Report Type: 
  Country: None (occurrence: None)
  Receive Date: 20060613
  Receipt Date: 20060601
  Transmission Date: 20061013
  Serious: Yes (Hospitalization)
  Sender: FDA-Public Use
  Company Number: BE-AMGEN-UK181492

PATIENT
  Sex: Male
  Weight: 56 kg

DRUGS (20)
  1. PALIFERMIN [Suspect]
     Indication: MUCOSAL INFLAMMATION
     Route: 065
  2. ARACYTIN [Concomitant]
     Route: 042
     Dates: start: 20051110, end: 20051113
  3. ETOPOSIDE [Concomitant]
     Route: 042
     Dates: start: 20051110, end: 20051113
  4. OFLOXACIN [Concomitant]
     Route: 048
     Dates: start: 20051107, end: 20051112
  5. FLUCONAZOLE [Concomitant]
     Route: 048
     Dates: start: 20051107, end: 20051128
  6. POTASSIUM CHLORIDE [Concomitant]
     Route: 042
     Dates: start: 20051112, end: 20051204
  7. MAGNESIUM [Concomitant]
     Route: 042
     Dates: start: 20051113, end: 20051204
  8. POLARAMINE [Concomitant]
     Route: 042
     Dates: start: 20051114, end: 20051204
  9. FRUSEMIDE [Concomitant]
     Route: 042
     Dates: start: 20051111, end: 20051209
  10. PHOSPHATE-SANDOZ [Concomitant]
     Route: 042
     Dates: start: 20041118, end: 20051204
  11. ACYCLOVIR [Concomitant]
     Route: 042
     Dates: start: 20051118
  12. SOLU-MEDROL [Concomitant]
     Route: 042
     Dates: start: 20051125, end: 20051128
  13. DIPROSONE [Concomitant]
     Route: 065
     Dates: start: 20051123, end: 20051129
  14. SULFADIAZINE [Concomitant]
     Route: 065
     Dates: start: 20051123, end: 20051129
  15. PANTOZOL [Concomitant]
     Route: 048
  16. ZOFRAN [Concomitant]
     Route: 042
     Dates: start: 20051110
  17. MELPHALAN [Concomitant]
     Route: 042
     Dates: start: 20051114, end: 20051114
  18. NADROPARIN CALCIUM [Concomitant]
     Route: 058
  19. BEFACT [Concomitant]
     Route: 048
  20. CEFEPIME [Concomitant]
     Route: 042
     Dates: start: 20051112, end: 20051125

REACTIONS (5)
  - DERMATITIS EXFOLIATIVE [None]
  - FLUID RETENTION [None]
  - OEDEMA [None]
  - PRURITUS [None]
  - PYREXIA [None]
